FAERS Safety Report 10931638 (Version 1)
Quarter: 2015Q1

REPORT INFORMATION
  Report Type: Spontaneous
  Country: US (occurrence: US)
  Receive Date: 20150319
  Receipt Date: 20150319
  Transmission Date: 20150721
  Serious: No
  Sender: FDA-Public Use
  Company Number: US-BAUSCH-BL-2015-000653

PATIENT
  Age: 13 Year
  Sex: Female
  Weight: 59.02 kg

DRUGS (2)
  1. SULFA WASH [Concomitant]
     Indication: PRODUCT USED FOR UNKNOWN INDICATION
  2. RENOVA [Suspect]
     Active Substance: TRETINOIN
     Indication: ACNE
     Route: 061
     Dates: start: 201501, end: 201501

REACTIONS (3)
  - Off label use [Recovered/Resolved]
  - Sneezing [Recovered/Resolved]
  - Product odour abnormal [Unknown]

NARRATIVE: CASE EVENT DATE: 201501
